FAERS Safety Report 9422854 (Version 2)
Quarter: 2013Q3

REPORT INFORMATION
  Report Type: Spontaneous
  Country: US (occurrence: None)
  Receive Date: 20130724
  Receipt Date: 20130730
  Transmission Date: 20140515
  Serious: Yes (Other)
  Sender: FDA-Public Use
  Company Number: ADR-2009-7284

PATIENT
  Age: 58 Year
  Sex: Male

DRUGS (1)
  1. LIORESAL INTRATHECAL [Suspect]
     Indication: MUSCLE SPASTICITY
     Dosage: UNK MCG, DAILY, INTRATH
     Route: 037

REACTIONS (5)
  - Withdrawal syndrome [None]
  - Medical device complication [None]
  - Leg amputation [None]
  - Toe amputation [None]
  - Diabetes mellitus inadequate control [None]
